FAERS Safety Report 8472487-9 (Version None)
Quarter: 2012Q2

REPORT INFORMATION
  Report Type: 
  Country: None (occurrence: None)
  Receive Date: 20120627
  Receipt Date: 20120123
  Transmission Date: 20120825
  Serious: No
  Sender: FDA-Public Use
  Company Number: US-AMGEN-USASP2012004599

PATIENT
  Age: 72 Year
  Sex: Male

DRUGS (1)
  1. EPOGEN [Suspect]
     Indication: RENAL FAILURE CHRONIC
     Dosage: 6600 IU, 3 TIMES/WK
     Route: 042
     Dates: start: 20100401

REACTIONS (2)
  - HYPERSENSITIVITY [None]
  - PRURITUS GENERALISED [None]
